FAERS Safety Report 4451662-4 (Version None)
Quarter: 2004Q3

REPORT INFORMATION
  Report Type: 
  Country: None (occurrence: None)
  Receive Date: 20040915
  Receipt Date: 20040903
  Transmission Date: 20050211
  Serious: Yes (Death)
  Sender: FDA-Public Use
  Company Number: RS004648-J

PATIENT
  Age: 81 Year
  Sex: Male
  Weight: 155 kg

DRUGS (8)
  1. RABEPRAZOLE SODIUM [Suspect]
     Indication: REFLUX OESOPHAGITIS
     Dosage: 10 MG, 1 IN 1 D, PER ORAL
     Route: 048
     Dates: start: 20040501, end: 20040729
  2. IRESSA [Suspect]
     Indication: NEOPLASM MALIGNANT
     Dosage: 250 MG, 1 IN 1 D, ORAL
     Route: 048
     Dates: start: 20020709, end: 20031122
  3. IRESSA [Suspect]
     Indication: NEOPLASM MALIGNANT
     Dosage: 250 MG, 1 IN 1 D, ORAL
     Route: 048
     Dates: start: 20040414, end: 20040430
  4. KRESTIN (POLYSACCHARIDE-K) [Suspect]
     Indication: NEOPLASM MALIGNANT
     Dosage: 3 GM, 3 IN 1 D, ORAL
     Route: 048
     Dates: start: 20040612, end: 20040716
  5. THEOLONG (TEHOPHYLLINE) [Concomitant]
  6. LASIX [Concomitant]
  7. MEDICON (DEXTROMETHORPHAN HYDROBROMIDE) [Concomitant]
  8. BETAMETHASONE [Concomitant]

REACTIONS (8)
  - ANAEMIA [None]
  - ANOREXIA [None]
  - DYSPNOEA [None]
  - DYSPNOEA EXACERBATED [None]
  - INTERSTITIAL LUNG DISEASE [None]
  - MALAISE [None]
  - REFLUX OESOPHAGITIS [None]
  - THERAPY NON-RESPONDER [None]
